FAERS Safety Report 5052453-6 (Version None)
Quarter: 2006Q3

REPORT INFORMATION
  Report Type: 
  Country: None (occurrence: None)
  Receive Date: 20060717
  Receipt Date: 20060215
  Transmission Date: 20061208
  Serious: No
  Sender: FDA-Public Use
  Company Number: US-BRISTOL-MYERS SQUIBB COMPANY-13285267

PATIENT
  Sex: Female

DRUGS (1)
  1. ESTRACE [Suspect]
     Indication: MENOPAUSE
     Route: 048
     Dates: start: 19960101

REACTIONS (2)
  - BREAST TENDERNESS [None]
  - DRUG ADMINISTRATION ERROR [None]
